FAERS Safety Report 6838754-7 (Version None)
Quarter: 2010Q3

REPORT INFORMATION
  Report Type: 
  Country: None (occurrence: None)
  Receive Date: 20100713
  Receipt Date: 20070723
  Transmission Date: 20110219
  Serious: No
  Sender: FDA-Public Use
  Company Number: US-PFIZER INC-2007047726

PATIENT
  Age: 73 Year
  Sex: Male
  Weight: 58 kg

DRUGS (7)
  1. CHANTIX [Suspect]
     Indication: SMOKING CESSATION THERAPY
     Dates: start: 20070602
  2. MONTELUKAST SODIUM [Concomitant]
  3. PREDNISONE [Concomitant]
  4. DOXAZOSIN [Concomitant]
  5. ALL OTHER THERAPEUTIC PRODUCTS [Concomitant]
  6. TAMSULOSIN HYDROCHLORIDE [Concomitant]
  7. OMEPRAZOLE [Concomitant]

REACTIONS (2)
  - OEDEMA PERIPHERAL [None]
  - URINARY TRACT DISORDER [None]
